FAERS Safety Report 23447220 (Version 1)
Quarter: 2024Q1

REPORT INFORMATION
  Report Type: Spontaneous
  Country: CN (occurrence: CN)
  Receive Date: 20240126
  Receipt Date: 20240126
  Transmission Date: 20240409
  Serious: Yes (Hospitalization, Other)
  Sender: FDA-Public Use
  Company Number: None

PATIENT
  Age: 72 Year
  Sex: Male
  Weight: 63.8 kg

DRUGS (6)
  1. CYCLOPHOSPHAMIDE [Suspect]
     Active Substance: CYCLOPHOSPHAMIDE
     Indication: Malignant mediastinal neoplasm
     Dosage: 1.8 G, ONE TIME IN ONE DAY, D2-5, DILUTED WITH 500 ML OF SODIUM CHLORIDE
     Route: 041
     Dates: start: 20240105, end: 20240108
  2. SODIUM CHLORIDE [Suspect]
     Active Substance: SODIUM CHLORIDE
     Indication: Medication dilution
     Dosage: 500 ML, ONE TIME IN ONE DAY, D1, USED TO DILUTE 180 MG OF PACLITAXEL
     Route: 041
     Dates: start: 20240104, end: 20240104
  3. SODIUM CHLORIDE [Suspect]
     Active Substance: SODIUM CHLORIDE
     Dosage: 500 ML, ONE TIME IN ONE DAY, D2-5, USED TO DILUTE 1.8 G OF CYCLOPHOSPHAMIDE
     Route: 041
     Dates: start: 20240105, end: 20240108
  4. SODIUM CHLORIDE [Suspect]
     Active Substance: SODIUM CHLORIDE
     Dosage: 500 ML, ONE TIME IN ONE DAY, D2-5, USED TO DILUTE 30 MG OF CISPLATIN
     Route: 041
     Dates: start: 20240105, end: 20240108
  5. PACLITAXEL [Suspect]
     Active Substance: PACLITAXEL
     Indication: Malignant mediastinal neoplasm
     Dosage: 180 MG, ONE TIME IN ONE DAY, D1, DILUTED WITH 500 ML OF SODIUM CHLORIDE
     Route: 041
     Dates: start: 20240104, end: 20240104
  6. CISPLATIN [Suspect]
     Active Substance: CISPLATIN
     Indication: Malignant mediastinal neoplasm
     Dosage: 30 MG, ONE TIME IN ONE DAY, D2-5, DILUTED WITH 500 ML OF SODIUM CHLORIDE
     Route: 041
     Dates: start: 20240105, end: 20240108

REACTIONS (1)
  - Myelosuppression [Recovering/Resolving]

NARRATIVE: CASE EVENT DATE: 20240116
